FAERS Safety Report 25268889 (Version 4)
Quarter: 2025Q4

REPORT INFORMATION
  Report Type: Spontaneous
  Country: CA (occurrence: CA)
  Receive Date: 20250505
  Receipt Date: 20251106
  Transmission Date: 20260118
  Serious: Yes (Death, Hospitalization)
  Sender: PFIZER
  Company Number: CA-PFIZER INC-202500012945

PATIENT
  Age: 83 Year
  Sex: Male

DRUGS (6)
  1. VYNDAMAX [Suspect]
     Active Substance: TAFAMIDIS
     Indication: Cardiac amyloidosis
     Dosage: 61 MG, ONCE A DAY
     Route: 048
     Dates: start: 20240919
  2. COLCHICINE [Concomitant]
     Active Substance: COLCHICINE
  3. XARELTO [Concomitant]
     Active Substance: RIVAROXABAN
  4. LASIX [Concomitant]
     Active Substance: FUROSEMIDE
  5. PERINDOPRIL [Concomitant]
     Active Substance: PERINDOPRIL
  6. ATENOLOL [Concomitant]
     Active Substance: ATENOLOL

REACTIONS (3)
  - Death [Fatal]
  - Cardiac failure congestive [Unknown]
  - Intentional product use issue [Unknown]

NARRATIVE: CASE EVENT DATE: 20251102
